FAERS Safety Report 8021926-6 (Version None)
Quarter: 2012Q1

REPORT INFORMATION
  Report Type: 
  Country: None (occurrence: None)
  Receive Date: 20120104
  Receipt Date: 20111227
  Transmission Date: 20120608
  Serious: Yes (Other)
  Sender: FDA-Public Use
  Company Number: BE-BAYER-200713335GDS

PATIENT
  Age: 42 Year
  Sex: Female
  Weight: 82 kg

DRUGS (3)
  1. AMOXICILLIN [Concomitant]
     Indication: TRACHEITIS
     Route: 065
     Dates: start: 20070201, end: 20070215
  2. AVELOX [Suspect]
     Indication: TRACHEITIS
  3. AVELOX [Suspect]
     Indication: BRONCHITIS
     Route: 048
     Dates: start: 20070213, end: 20070217

REACTIONS (8)
  - IRIDOCYCLITIS [None]
  - UVEITIS [None]
  - IRIS TRANSILLUMINATION DEFECT [None]
  - PHOTOPHOBIA [None]
  - VISUAL ACUITY REDUCED [None]
  - IRIS HYPOPIGMENTATION [None]
  - MYDRIASIS [None]
  - EYE PAIN [None]
